FAERS Safety Report 13865256 (Version 1)
Quarter: 2017Q3

REPORT INFORMATION
  Report Type: Spontaneous
  Country: MY (occurrence: MY)
  Receive Date: 20170814
  Receipt Date: 20170814
  Transmission Date: 20171127
  Serious: Yes (Other)
  Sender: FDA-Public Use
  Company Number: MY-BAYER-2017-149770

PATIENT
  Age: 25 Year
  Sex: Female

DRUGS (1)
  1. AVELOX [Suspect]
     Active Substance: MOXIFLOXACIN HYDROCHLORIDE
     Indication: URINARY TRACT INFECTION
     Dosage: 400 MG, ONCE
     Route: 042
     Dates: start: 20170727, end: 20170727

REACTIONS (1)
  - Infusion site erythema [Recovering/Resolving]

NARRATIVE: CASE EVENT DATE: 20170727
